FAERS Safety Report 8707356 (Version 4)
Quarter: 2012Q4

REPORT INFORMATION
  Report Type: 
  Country: US (occurrence: US)
  Receive Date: 20120803
  Receipt Date: 20121119
  Transmission Date: 20130627
  Serious: Yes (Disabling, Other)
  Sender: FDA-Public Use
  Company Number: US-ASTRAZENECA-2012SE53054

PATIENT
  Age: 79 Year
  Sex: Female

DRUGS (1)
  1. SYMBICORT PMDI [Suspect]
     Dosage: 160/4.5 mcg DAILY
     Route: 055

REACTIONS (4)
  - Macular degeneration [Not Recovered/Not Resolved]
  - Dementia Alzheimer^s type [Unknown]
  - Dementia [Unknown]
  - Eye degenerative disorder [Unknown]
